FAERS Safety Report 6052289-3 (Version None)
Quarter: 2009Q1

REPORT INFORMATION
  Report Type: 
  Country: None (occurrence: None)
  Receive Date: 20090121
  Receipt Date: 20090109
  Transmission Date: 20090719
  Serious: Yes (Hospitalization)
  Sender: FDA-Public Use
  Company Number: APP200801223

PATIENT
  Age: 2 Year
  Sex: Female

DRUGS (4)
  1. CLINDAMYCIN PHOSPHATE [Suspect]
     Indication: ARTHRITIS BACTERIAL
     Dosage: 140 MG, 1 IN 8 HR, INTRAVENOUS
     Route: 042
     Dates: start: 20081201, end: 20081207
  2. ECLIPSE HOME PUMP [Suspect]
     Indication: INFUSION
     Dosage: , ONCE
     Dates: start: 20081207, end: 20081207
  3. CEFTRIAXONE [Concomitant]
  4. HEPARIN [Concomitant]

REACTIONS (7)
  - DEVICE MALFUNCTION [None]
  - INFUSION RELATED REACTION [None]
  - MEDICAL DEVICE COMPLICATION [None]
  - PETECHIAE [None]
  - POSTURE ABNORMAL [None]
  - RASH MACULO-PAPULAR [None]
  - SCREAMING [None]
